FAERS Safety Report 10556268 (Version 1)
Quarter: 2014Q4

REPORT INFORMATION
  Report Type: Report from Study
  Country: AU (occurrence: AU)
  Receive Date: 20141031
  Receipt Date: 20141031
  Transmission Date: 20150529
  Serious: Yes (Other)
  Sender: FDA-Public Use
  Company Number: AU-ROCHE-1481908

PATIENT
  Age: 18 Year

DRUGS (2)
  1. CLONAZEPAM. [Suspect]
     Active Substance: CLONAZEPAM
     Indication: JUVENILE MYOCLONIC EPILEPSY
     Route: 065
  2. CARBAMAZEPINE. [Concomitant]
     Active Substance: CARBAMAZEPINE
     Indication: JUVENILE MYOCLONIC EPILEPSY
     Route: 065

REACTIONS (4)
  - Drug withdrawal convulsions [Unknown]
  - Somnolence [Recovered/Resolved]
  - Lethargy [Recovered/Resolved]
  - Withdrawal syndrome [Unknown]
